FAERS Safety Report 25506873 (Version 1)
Quarter: 2025Q3

REPORT INFORMATION
  Report Type: Spontaneous
  Country: US (occurrence: US)
  Receive Date: 20250702
  Receipt Date: 20250702
  Transmission Date: 20251020
  Serious: No
  Sender: RADIUS PHARM
  Company Number: US-RADIUS HEALTH INC.-US-RADIUS-25046892

PATIENT
  Age: 72 Year
  Sex: Female
  Weight: 40.816 kg

DRUGS (2)
  1. TYMLOS [Suspect]
     Active Substance: ABALOPARATIDE
     Indication: Senile osteoporosis
     Dosage: 80 MICROGRAM, QD
     Route: 058
     Dates: start: 20250401, end: 20250425
  2. DILTIAZEM [Concomitant]
     Active Substance: DILTIAZEM
     Indication: Product used for unknown indication

REACTIONS (11)
  - Headache [Not Recovered/Not Resolved]
  - Diarrhoea [Unknown]
  - Blood pressure decreased [Unknown]
  - Arrhythmia [Unknown]
  - Peripheral swelling [Recovering/Resolving]
  - Underweight [Unknown]
  - Heart rate increased [Unknown]
  - Tachycardia [Unknown]
  - Blood pressure fluctuation [Not Recovered/Not Resolved]
  - Pain in extremity [Not Recovered/Not Resolved]
  - Asthenia [Unknown]

NARRATIVE: CASE EVENT DATE: 20250401
